FAERS Safety Report 4695145-5 (Version None)
Quarter: 2005Q2

REPORT INFORMATION
  Report Type: 
  Country: None (occurrence: None)
  Receive Date: 20050617
  Receipt Date: 20050610
  Transmission Date: 20051028
  Serious: Yes (Other)
  Sender: FDA-Public Use
  Company Number: USA-2005-0019853

PATIENT
  Age: 2 Year
  Sex: Female

DRUGS (3)
  1. CEFDITOREN PIVOXIL (SIMILAR TO NDA 21-222) (CEFDITOREN PIVOXIL) [Suspect]
     Indication: PYREXIA
     Dosage: ORAL
     Route: 048
  2. ROCEPHIN [Suspect]
     Dosage: ORAL
     Route: 048
     Dates: start: 20040722, end: 20040730
  3. CARBENIN (PANIPENEM, BETAMIPRON) [Suspect]
     Dates: start: 20040807

REACTIONS (1)
  - HISTIOCYTOSIS HAEMATOPHAGIC [None]
